FAERS Safety Report 4764593-7 (Version None)
Quarter: 2005Q3

REPORT INFORMATION
  Report Type: 
  Country: None (occurrence: None)
  Receive Date: 20050909
  Receipt Date: 20050901
  Transmission Date: 20060218
  Serious: Yes (Other)
  Sender: FDA-Public Use
  Company Number: 200517766GDDC

PATIENT
  Age: 70 Year
  Sex: Female

DRUGS (5)
  1. ARAVA [Suspect]
     Indication: RHEUMATOID ARTHRITIS
     Route: 048
     Dates: start: 20040901, end: 20050801
  2. ATACAND [Concomitant]
     Dosage: DOSE: UNK
  3. LOSEC [Concomitant]
     Dosage: DOSE: UNK
  4. GOLD INJECTION [Concomitant]
     Dosage: DOSE: UNK
  5. FISH OIL [Concomitant]
     Dosage: DOSE: UNK

REACTIONS (3)
  - DEEP VEIN THROMBOSIS [None]
  - DIARRHOEA [None]
  - WHITE BLOOD CELL COUNT DECREASED [None]
